FAERS Safety Report 19766387 (Version 1)
Quarter: 2021Q3

REPORT INFORMATION
  Report Type: Spontaneous
  Country: IT (occurrence: IT)
  Receive Date: 20210831
  Receipt Date: 20210831
  Transmission Date: 20211014
  Serious: Yes (Hospitalization)
  Sender: FDA-Public Use
  Company Number: IT-ASTRAZENECA-2021A696398

PATIENT
  Age: 62 Year
  Sex: Male

DRUGS (1)
  1. ACALABRUTINIB. [Suspect]
     Active Substance: ACALABRUTINIB
     Indication: CHRONIC LYMPHOCYTIC LEUKAEMIA
     Route: 048
     Dates: start: 20210619, end: 20210822

REACTIONS (1)
  - Acute coronary syndrome [Unknown]

NARRATIVE: CASE EVENT DATE: 20210822
